FAERS Safety Report 5150361-3 (Version None)
Quarter: 2006Q4

REPORT INFORMATION
  Report Type: 
  Country: None (occurrence: None)
  Receive Date: 20061114
  Receipt Date: 20061102
  Transmission Date: 20070319
  Serious: Yes (Hospitalization, Other)
  Sender: FDA-Public Use
  Company Number: GB-ELI_LILLY_AND_COMPANY-GB200611000507

PATIENT
  Age: 58 Year
  Sex: Male

DRUGS (1)
  1. ZYPREXA [Suspect]
     Indication: BIPOLAR DISORDER
     Dosage: 15 MG, UNK
     Dates: start: 20061019, end: 20061102

REACTIONS (2)
  - ATRIAL FIBRILLATION [None]
  - LEFT VENTRICULAR FAILURE [None]
